FAERS Safety Report 10258735 (Version 3)
Quarter: 2014Q3

REPORT INFORMATION
  Report Type: Report from Study
  Country: BR (occurrence: None)
  Receive Date: 20140623
  Receipt Date: 20140813
  Transmission Date: 20150326
  Serious: Yes (Other)
  Sender: FDA-Public Use
  Company Number: VAL_03180_2014

PATIENT
  Sex: Male
  Weight: 75 kg

DRUGS (7)
  1. LOTENSIN [Suspect]
     Active Substance: BENAZEPRIL HYDROCHLORIDE
     Indication: HYPERTENSION
     Dosage: DF
  2. PRESS PLUS - AMLODIPINE BESILATE, BENAZEPRIL HYDROCHLORIDE [Concomitant]
  3. AAS [Concomitant]
     Active Substance: ASPIRIN
  4. SIMVASTATIN. [Concomitant]
     Active Substance: SIMVASTATIN
  5. GALVUS MET [Suspect]
     Active Substance: METFORMIN HYDROCHLORIDE\VILDAGLIPTIN
     Indication: TYPE 2 DIABETES MELLITUS
     Dates: start: 20140301
  6. DICLOFENAC SODIUM. [Concomitant]
     Active Substance: DICLOFENAC SODIUM
  7. NIMESULIDE (UNKNOWN) [Concomitant]
     Active Substance: NIMESULIDE

REACTIONS (6)
  - Cataract [None]
  - Disease progression [None]
  - Product quality issue [None]
  - No therapeutic response [None]
  - Blood glucose increased [None]
  - Blood cholesterol increased [None]
